FAERS Safety Report 23504177 (Version 1)
Quarter: 2024Q1

REPORT INFORMATION
  Report Type: Spontaneous
  Country: IT (occurrence: IT)
  Receive Date: 20240209
  Receipt Date: 20240209
  Transmission Date: 20240410
  Serious: Yes (Other)
  Sender: FDA-Public Use
  Company Number: None

PATIENT
  Age: 81 Year
  Sex: Female
  Weight: 50 kg

DRUGS (2)
  1. FLUOROURACIL [Suspect]
     Active Substance: FLUOROURACIL
     Indication: Gastric cancer
     Dosage: 1788 MG IC 46 H OGNI 14 GG  + 298 MG PUSH OGNI 14 GG
     Route: 042
     Dates: start: 20230919, end: 20231114
  2. OXALIPLATIN [Suspect]
     Active Substance: OXALIPLATIN
     Indication: Gastric cancer
     Dosage: OXALIPLATINO
     Route: 042
     Dates: start: 20230919, end: 20231114

REACTIONS (3)
  - Tendon rupture [Not Recovered/Not Resolved]
  - Joint effusion [Not Recovered/Not Resolved]
  - Peripheral swelling [Not Recovered/Not Resolved]

NARRATIVE: CASE EVENT DATE: 20231114
